FAERS Safety Report 9574675 (Version 1)
Quarter: 2013Q4

REPORT INFORMATION
  Report Type: Spontaneous
  Country: US (occurrence: US)
  Receive Date: 20131001
  Receipt Date: 20131001
  Transmission Date: 20140711
  Serious: No
  Sender: FDA-Public Use
  Company Number: US-PURDUE-USA-2012-0084752

PATIENT
  Sex: Male

DRUGS (1)
  1. BUTRANS [Suspect]
     Indication: PAIN
     Dosage: 20 MCG/HR, UNK
     Route: 062
     Dates: start: 20120306

REACTIONS (10)
  - Application site burn [Unknown]
  - Pyrexia [Recovered/Resolved]
  - Chills [Recovered/Resolved]
  - Hyperhidrosis [Recovered/Resolved]
  - Application site urticaria [Unknown]
  - Application site vesicles [Unknown]
  - Application site pruritus [Recovered/Resolved]
  - Drug effect increased [Recovered/Resolved]
  - Euphoric mood [Recovered/Resolved]
  - Drug effect decreased [Unknown]
